FAERS Safety Report 10431691 (Version 1)
Quarter: 2014Q3

REPORT INFORMATION
  Report Type: Spontaneous
  Country: GB (occurrence: None)
  Receive Date: 20140903
  Receipt Date: 20140903
  Transmission Date: 20150326
  Serious: Yes (Hospitalization)
  Sender: FDA-Public Use
  Company Number: IMP_07886_2014

PATIENT
  Age: 58 Year
  Sex: Female

DRUGS (6)
  1. FUROSEMIDE. [Concomitant]
     Active Substance: FUROSEMIDE
  2. RAMIPRIL. [Concomitant]
     Active Substance: RAMIPRIL
  3. TERBUTALINE [Concomitant]
     Active Substance: TERBUTALINE
  4. WARFARIN [Concomitant]
     Active Substance: WARFARIN
  5. DIGOXIN. [Suspect]
     Active Substance: DIGOXIN
     Indication: PRODUCT USED FOR UNKNOWN INDICATION
     Dosage: (DF)
  6. SPIRONOLACTONE. [Concomitant]
     Active Substance: SPIRONOLACTONE

REACTIONS (9)
  - Toxicity to various agents [None]
  - Bundle branch block right [None]
  - Ventricular extrasystoles [None]
  - Ventricular tachycardia [None]
  - Sinus bradycardia [None]
  - Supraventricular extrasystoles [None]
  - Atrioventricular block [None]
  - Atrial tachycardia [None]
  - Nodal rhythm [None]
